FAERS Safety Report 16842927 (Version 1)
Quarter: 2019Q3

REPORT INFORMATION
  Report Type: Spontaneous
  Country: DE (occurrence: DE)
  Receive Date: 20190924
  Receipt Date: 20190924
  Transmission Date: 20191005
  Serious: Yes (Other)
  Sender: FDA-Public Use
  Company Number: DE-ASTRAZENECA-2019SF32779

PATIENT
  Age: 23022 Day
  Sex: Male

DRUGS (1)
  1. XIGDUO XR [Suspect]
     Active Substance: DAPAGLIFLOZIN PROPANEDIOL\METFORMIN HYDROCHLORIDE
     Dosage: 5 / 1000 MG
     Route: 048
     Dates: start: 20190206

REACTIONS (4)
  - Swelling [Unknown]
  - Phimosis [Unknown]
  - Dysuria [Unknown]
  - Rash [Unknown]

NARRATIVE: CASE EVENT DATE: 20190304
